FAERS Safety Report 5505492-2 (Version None)
Quarter: 2007Q4

REPORT INFORMATION
  Report Type: 
  Country: None (occurrence: None)
  Receive Date: 20071031
  Receipt Date: 20071023
  Transmission Date: 20080405
  Serious: Yes (Other)
  Sender: FDA-Public Use
  Company Number: GXKR2007GB09130

PATIENT
  Age: 59 Year
  Sex: Male

DRUGS (8)
  1. LISINOPRIL [Suspect]
  2. METFORMIN HCL [Suspect]
     Dates: start: 19960101
  3. ACOMPLIA [Suspect]
     Indication: WEIGHT DECREASED
     Dosage: 20 MG, QD, ORAL
     Route: 048
     Dates: start: 20070116
  4. ACETYLSALICYLIC ACID SRT [Concomitant]
  5. FUROSEMIDE [Concomitant]
  6. GLICLAZIDE              (GLICLAZIDE) [Concomitant]
  7. PIOGLITAZONE HCL [Concomitant]
  8. SIMVASTATIN [Concomitant]

REACTIONS (1)
  - RENAL IMPAIRMENT [None]
